FAERS Safety Report 22032738 (Version 1)
Quarter: 2023Q1

REPORT INFORMATION
  Report Type: Other
  Country: US (occurrence: None)
  Receive Date: 20230224
  Receipt Date: 20230224
  Transmission Date: 20230418
  Serious: Yes (Other)
  Sender: FDA-Public Use
  Company Number: US-ROCHE-3289374

PATIENT
  Age: 50 Year
  Sex: Female
  Weight: 68.100 kg

DRUGS (2)
  1. OCREVUS [Suspect]
     Active Substance: OCRELIZUMAB
     Indication: Relapsing-remitting multiple sclerosis
     Dosage: UNKNOWN
     Route: 042
     Dates: start: 2021
  2. ITRACONAZOLE [Concomitant]
     Active Substance: ITRACONAZOLE

REACTIONS (4)
  - Lymphadenopathy [Recovered/Resolved]
  - Histoplasmosis [Not Recovered/Not Resolved]
  - Secondary progressive multiple sclerosis [Not Recovered/Not Resolved]
  - Positron emission tomogram abnormal [Unknown]

NARRATIVE: CASE EVENT DATE: 20220101
